FAERS Safety Report 8966593 (Version 1)
Quarter: 2012Q4

REPORT INFORMATION
  Report Type: 
  Country: EC (occurrence: EC)
  Receive Date: 20121214
  Receipt Date: 20121214
  Transmission Date: 20130627
  Serious: Yes (Hospitalization, Other)
  Sender: FDA-Public Use
  Company Number: PHHY2012EC114553

PATIENT
  Age: 86 Year
  Sex: Male

DRUGS (4)
  1. DIOVAN HCT [Suspect]
     Indication: HYPERTENSION
     Dosage: 1 DF (160mg vals/12.5mg hct), QD
     Route: 048
     Dates: start: 20100722, end: 20121203
  2. DAFLON (DIOSMIN) [Concomitant]
     Dosage: 500 mg, UNK
     Route: 048
  3. PLAVIX [Concomitant]
     Dosage: 75 mg, UNK
     Route: 048
  4. UROSIN [Concomitant]
     Indication: HYPERURICAEMIA
     Dosage: 300 mg, UNK
     Route: 048

REACTIONS (4)
  - Thrombosis [Recovering/Resolving]
  - Oedema peripheral [Recovering/Resolving]
  - Erythema [Unknown]
  - Peripheral coldness [Unknown]
